FAERS Safety Report 20451535 (Version 1)
Quarter: 2022Q1

REPORT INFORMATION
  Report Type: Spontaneous
  Country: None (occurrence: FR)
  Receive Date: 20220209
  Receipt Date: 20220209
  Transmission Date: 20220424
  Serious: Yes (Other)
  Sender: FDA-Public Use
  Company Number: FR-B.Braun Medical Inc.-2124789

PATIENT
  Age: 85 Year
  Sex: Female
  Weight: 60 kg

DRUGS (26)
  1. POTASSIUM CHLORIDE [Suspect]
     Active Substance: POTASSIUM CHLORIDE
  2. IMIPENEM AND CILASTATIN [Suspect]
     Active Substance: CILASTATIN SODIUM\IMIPENEM
  3. CIPROFLOXACIN [Suspect]
     Active Substance: CIPROFLOXACIN
  4. VILDAGLIPTIN [Suspect]
     Active Substance: VILDAGLIPTIN
  5. LANSOPRAZOLE [Suspect]
     Active Substance: LANSOPRAZOLE
  6. ASPIRIN [Suspect]
     Active Substance: ASPIRIN
  7. FOLIC ACID [Suspect]
     Active Substance: FOLIC ACID
  8. METOCLOPRAMIDE [Suspect]
     Active Substance: METOCLOPRAMIDE
  9. METHOTREXATE [Suspect]
     Active Substance: METHOTREXATE
  10. BACTRIM [Suspect]
     Active Substance: SULFAMETHOXAZOLE\TRIMETHOPRIM
  11. BACTRIM [Suspect]
     Active Substance: SULFAMETHOXAZOLE\TRIMETHOPRIM
  12. TRIMETHOPRIM [Suspect]
     Active Substance: TRIMETHOPRIM
  13. IMIPENEM [Suspect]
     Active Substance: IMIPENEM
  14. SULFAMETHOXAZOLE\TRIMETHOPRIM [Suspect]
     Active Substance: SULFAMETHOXAZOLE\TRIMETHOPRIM
  15. GANCICLOVIR SODIUM [Suspect]
     Active Substance: GANCICLOVIR SODIUM
  16. HEPARIN CALCIUM [Suspect]
     Active Substance: HEPARIN CALCIUM
  17. INSULIN NOS [Suspect]
     Active Substance: INSULIN NOS
  18. ACETAMINOPHEN [Concomitant]
     Active Substance: ACETAMINOPHEN
  19. BISOPROLOL. [Concomitant]
     Active Substance: BISOPROLOL FUMARATE
  20. CLOPIDOGREL [Concomitant]
     Active Substance: CLOPIDOGREL BISULFATE
  21. LERCANIDIPINE [Concomitant]
     Active Substance: LERCANIDIPINE
  22. TIOTROPIUM [Concomitant]
     Active Substance: TIOTROPIUM
  23. PREDNISONE [Concomitant]
     Active Substance: PREDNISONE
  24. FLUTICASONE FUROATE\VILANTEROL TRIFENATATE [Concomitant]
     Active Substance: FLUTICASONE FUROATE\VILANTEROL TRIFENATATE
  25. FUROSEMIDE [Concomitant]
     Active Substance: FUROSEMIDE
  26. ENALAPRIL [Concomitant]
     Active Substance: ENALAPRIL

REACTIONS (3)
  - Neutropenia [Recovered/Resolved]
  - Leukopenia [Recovered/Resolved]
  - Product use in unapproved indication [Recovered/Resolved]
